FAERS Safety Report 7146023-3 (Version None)
Quarter: 2010Q4

REPORT INFORMATION
  Report Type: 
  Country: None (occurrence: None)
  Receive Date: 20101208
  Receipt Date: 20101124
  Transmission Date: 20110411
  Serious: Yes (Other)
  Sender: FDA-Public Use
  Company Number: CZ-GENENTECH-308992

PATIENT
  Sex: Female

DRUGS (3)
  1. RITUXIMAB [Suspect]
     Indication: NON-HODGKIN'S LYMPHOMA
     Dosage: 375 MG/M2, Q3M
     Route: 042
     Dates: start: 20081022, end: 20090121
  2. RITUXIMAB [Suspect]
     Indication: B-CELL LYMPHOMA RECURRENT
  3. IBUPROFEN [Concomitant]

REACTIONS (1)
  - AUTOIMMUNE HEPATITIS [None]
